FAERS Safety Report 18697542 (Version 2)
Quarter: 2021Q1

REPORT INFORMATION
  Report Type: Report from Study
  Country: None (occurrence: US)
  Receive Date: 20210105
  Receipt Date: 20210105
  Transmission Date: 20210419
  Serious: Yes (Hospitalization, Other)
  Sender: FDA-Public Use
  Company Number: US-ABBVIE-20K-163-3713163-00

PATIENT
  Age: 68 Year
  Sex: Female
  Weight: 78.09 kg

DRUGS (2)
  1. HUMALOG [Concomitant]
     Active Substance: INSULIN LISPRO
     Indication: TYPE 2 DIABETES MELLITUS
  2. CREON [Suspect]
     Active Substance: PANCRELIPASE AMYLASE\PANCRELIPASE LIPASE\PANCRELIPASE PROTEASE
     Indication: PANCREATITIS CHRONIC
     Dosage: TWO TO THREE CAPSULE WITH EACH MEAL AND ONE TO TWO CAPSULES EACH SNACK
     Route: 048
     Dates: start: 2007

REACTIONS (12)
  - Knee arthroplasty [Unknown]
  - Osteoarthritis [Recovered/Resolved]
  - Immune-mediated myositis [Not Recovered/Not Resolved]
  - Hypertrophic cardiomyopathy [Not Recovered/Not Resolved]
  - Plasma cell myeloma [Not Recovered/Not Resolved]
  - Cardiac failure [Not Recovered/Not Resolved]
  - Spinal stenosis [Not Recovered/Not Resolved]
  - Surgery [Unknown]
  - Antibody test positive [Not Recovered/Not Resolved]
  - Infection [Recovered/Resolved]
  - Renal failure [Not Recovered/Not Resolved]
  - Dysphagia [Not Recovered/Not Resolved]

NARRATIVE: CASE EVENT DATE: 2008
